FAERS Safety Report 16744100 (Version 4)
Quarter: 2019Q4

REPORT INFORMATION
  Report Type: Spontaneous
  Country: JP (occurrence: JP)
  Receive Date: 20190827
  Receipt Date: 20191118
  Transmission Date: 20200122
  Serious: Yes (Death, Hospitalization)
  Sender: FDA-Public Use
  Company Number: JP-009507513-1908JPN002107J

PATIENT
  Age: 73 Year
  Sex: Male
  Weight: 48 kg

DRUGS (14)
  1. ALIMTA [Concomitant]
     Active Substance: PEMETREXED DISODIUM
     Dosage: 808 MILLIGRAM, Q3W
     Route: 041
     Dates: start: 20190806, end: 20190806
  2. CARBOPLATIN. [Concomitant]
     Active Substance: CARBOPLATIN
     Indication: NON-SMALL CELL LUNG CANCER
     Dosage: 403.5 MILLIGRAM, Q3W
     Route: 041
     Dates: start: 20190510, end: 20190716
  3. AMBROXOL HYDROCHLORIDE [Concomitant]
     Active Substance: AMBROXOL HYDROCHLORIDE
     Indication: PALLIATIVE CARE
     Dosage: 1 DOSAGE FORM, TID
     Route: 048
     Dates: start: 20190510, end: 20190812
  4. DENOTAS [Concomitant]
     Active Substance: CALCIUM CARBONATE\CHOLECALCIFEROL\MAGNESIUM CARBONATE
     Indication: CHEMOTHERAPY CYTOKINE PROPHYLAXIS
     Dosage: 2 DOSAGE FORM, QD
     Route: 048
     Dates: start: 20190520, end: 20190912
  5. THEOPHYLLINE [Concomitant]
     Active Substance: THEOPHYLLINE ANHYDROUS
     Indication: CHRONIC OBSTRUCTIVE PULMONARY DISEASE
     Dosage: 1 DOSAGE FORM, QD
     Dates: start: 20190524, end: 20190912
  6. KEYTRUDA [Suspect]
     Active Substance: PEMBROLIZUMAB
     Indication: NON-SMALL CELL LUNG CANCER
     Dosage: 200 MILLIGRAM, Q3W
     Route: 041
     Dates: start: 20190510, end: 20190716
  7. HUSCODE [Concomitant]
     Active Substance: CHLORPHENIRAMINE MALEATE\DIHYDROCODEINE PHOSPHATE\METHYLEPHEDRINE HYDROCHLORIDE, DL-
     Indication: PALLIATIVE CARE
     Dosage: UNK, PRN
     Route: 048
     Dates: start: 20190515, end: 20190912
  8. AMITIZA [Concomitant]
     Active Substance: LUBIPROSTONE
     Indication: CONSTIPATION
     Dosage: 1 DOSAGE FORM, BID
     Route: 048
     Dates: start: 20190723, end: 20190912
  9. ALIMTA [Concomitant]
     Active Substance: PEMETREXED DISODIUM
     Indication: NON-SMALL CELL LUNG CANCER
     Dosage: 808 MILLIGRAM, Q3W
     Route: 041
     Dates: start: 20190510, end: 20190716
  10. KEYTRUDA [Suspect]
     Active Substance: PEMBROLIZUMAB
     Dosage: 200 MILLIGRAM, Q3W
     Route: 041
     Dates: start: 20190806, end: 20190806
  11. MAGNESIUM OXIDE. [Concomitant]
     Active Substance: MAGNESIUM OXIDE
     Indication: CONSTIPATION
     Dosage: 1 DOSAGE FORM, TID
     Route: 048
     Dates: start: 20190513, end: 20190912
  12. PANTETHINE [Concomitant]
     Active Substance: PANTETHINE
     Indication: CONSTIPATION
     Dosage: 1 DOSAGE FORM, TID
     Route: 048
     Dates: start: 20190513, end: 20190912
  13. ONBREZ [Concomitant]
     Active Substance: INDACATEROL
     Indication: CHRONIC OBSTRUCTIVE PULMONARY DISEASE
     Dosage: 1 DOSAGE FORM, QD
     Dates: start: 20190516, end: 20190912
  14. PANVITAN [Concomitant]
     Active Substance: VITAMINS
     Indication: PREMEDICATION
     Dosage: 1 GRAM, QD
     Route: 048
     Dates: start: 20190510, end: 20190812

REACTIONS (2)
  - Lung disorder [Fatal]
  - Venous thrombosis [Unknown]

NARRATIVE: CASE EVENT DATE: 2019
